FAERS Safety Report 5734053-5 (Version None)
Quarter: 2008Q2

REPORT INFORMATION
  Report Type: 
  Country: None (occurrence: None)
  Receive Date: 20080509
  Receipt Date: 20080429
  Transmission Date: 20081010
  Serious: Yes (Other)
  Sender: FDA-Public Use
  Company Number: US-PFIZER INC-2008038374

PATIENT
  Sex: Female
  Weight: 63.636 kg

DRUGS (3)
  1. NEURONTIN [Suspect]
     Indication: NEURALGIA
  2. ELAVIL [Concomitant]
  3. VITAMINS [Concomitant]

REACTIONS (6)
  - CONSTIPATION [None]
  - DIZZINESS [None]
  - DRY MOUTH [None]
  - FATIGUE [None]
  - NEOPLASM MALIGNANT [None]
  - WEIGHT INCREASED [None]
